FAERS Safety Report 5355197-6 (Version None)
Quarter: 2007Q2

REPORT INFORMATION
  Report Type: 
  Country: None (occurrence: None)
  Receive Date: 20070611
  Receipt Date: 20070531
  Transmission Date: 20071010
  Serious: Yes (Hospitalization)
  Sender: FDA-Public Use
  Company Number: LTI2007A00129

PATIENT
  Age: 78 Year
  Sex: Male

DRUGS (4)
  1. ACTOS [Suspect]
     Indication: DIABETES MELLITUS NON-INSULIN-DEPENDENT
     Dosage: 1 DF (1 DF, 1 IN 1 D) ORAL
     Route: 048
     Dates: start: 20060101, end: 20070328
  2. AMARYL [Suspect]
     Indication: DIABETES MELLITUS NON-INSULIN-DEPENDENT
     Dosage: 6 MG (6 MG, 1 IN 1 D) ORAL
     Route: 048
     Dates: start: 20060101, end: 20070328
  3. BI TILDEM (DILTIAZEM HYDROCHLORIDE) [Concomitant]
  4. COTAREG (HYDROCHLOROTHIAZIDE, VALSARTAN) [Concomitant]

REACTIONS (6)
  - ASTHENIA [None]
  - CEREBELLAR SYNDROME [None]
  - HYPOGLYCAEMIA [None]
  - TREMOR [None]
  - URINARY TRACT INFECTION ENTEROCOCCAL [None]
  - VISUAL DISTURBANCE [None]
